FAERS Safety Report 8580862-7 (Version None)
Quarter: 2012Q3

REPORT INFORMATION
  Report Type: 
  Country: None (occurrence: None)
  Receive Date: 20120726
  Receipt Date: 20120510
  Transmission Date: 20120928
  Serious: Yes (Other)
  Sender: FDA-Public Use
  Company Number: 2012REG0002

PATIENT
  Age: 36 Year
  Sex: Female

DRUGS (6)
  1. FOLIC ACID [Concomitant]
  2. KALETRA [Suspect]
     Indication: PRODUCT USED FOR UNKNOWN INDICATION
  3. ATAZANAVIR SULFATE [Suspect]
     Indication: PRODUCT USED FOR UNKNOWN INDICATION
  4. NEVIRAPINE [Suspect]
     Indication: PRODUCT USED FOR UNKNOWN INDICATION
     Dosage: ORAL
     Route: 048
  5. ABACAVIR SULFATE AND LAMIVUDINE [Suspect]
     Indication: PRODUCT USED FOR UNKNOWN INDICATION
  6. OMEPRAZOLE [Suspect]
     Indication: PRODUCT USED FOR UNKNOWN INDICATION

REACTIONS (4)
  - VIRAL LOAD INCREASED [None]
  - DRUG EFFECT DECREASED [None]
  - MATERNAL EXPOSURE BEFORE PREGNANCY [None]
  - PREGNANCY [None]
